FAERS Safety Report 15152335 (Version 1)
Quarter: 2018Q3

REPORT INFORMATION
  Report Type: Spontaneous
  Country: US (occurrence: US)
  Receive Date: 20180717
  Receipt Date: 20180717
  Transmission Date: 20181010
  Serious: No
  Sender: FDA-Public Use
  Company Number: US-SHIRE-US201826168

PATIENT
  Age: 56 Year
  Sex: Female
  Weight: 74.83 kg

DRUGS (4)
  1. CLARITIN [Concomitant]
     Active Substance: LORATADINE
     Indication: HYPERSENSITIVITY
  2. XIIDRA [Suspect]
     Active Substance: LIFITEGRAST
     Indication: DRY EYE
     Dosage: 1 GTT, 2X/DAY:BID
     Route: 047
     Dates: start: 2018, end: 20180618
  3. OMEGA 3 FISH OIL [Concomitant]
     Active Substance: FISH OIL\OMEGA-3 FATTY ACIDS
     Indication: PRODUCT USED FOR UNKNOWN INDICATION
  4. CORTISONE [Concomitant]
     Active Substance: CORTISONE\HYDROCORTISONE
     Indication: PRODUCT USED FOR UNKNOWN INDICATION

REACTIONS (7)
  - Instillation site pain [Unknown]
  - Hypersensitivity [Unknown]
  - Eye disorder [Unknown]
  - Instillation site infection [Unknown]
  - Instillation site swelling [Unknown]
  - Instillation site lacrimation [Unknown]
  - Sneezing [Unknown]

NARRATIVE: CASE EVENT DATE: 20180617
